FAERS Safety Report 25426465 (Version 2)
Quarter: 2025Q2

REPORT INFORMATION
  Report Type: Report from Study
  Country: US (occurrence: US)
  Receive Date: 20250612
  Receipt Date: 20250619
  Transmission Date: 20250717
  Serious: Yes (Hospitalization, Other)
  Sender: NOVARTIS
  Company Number: US-002147023-NVSC2025US054176

PATIENT
  Age: 83 Year
  Sex: Female

DRUGS (9)
  1. MYFORTIC [Suspect]
     Active Substance: MYCOPHENOLATE SODIUM
     Indication: Product used for unknown indication
     Dosage: 180 MG, BID
     Route: 048
     Dates: start: 2010
  2. ELIQUIS [Concomitant]
     Active Substance: APIXABAN
     Indication: Product used for unknown indication
     Dosage: 2.5 MG, BID
     Route: 065
  3. DUPIXENT [Concomitant]
     Active Substance: DUPILUMAB
     Indication: Product used for unknown indication
     Route: 065
  4. RETACRIT [Concomitant]
     Active Substance: EPOETIN ALFA-EPBX
     Indication: Product used for unknown indication
     Route: 065
  5. ERGOCALCIFEROL [Concomitant]
     Active Substance: ERGOCALCIFEROL
     Indication: Product used for unknown indication
     Dosage: 50000 UNITS, QW
     Route: 065
  6. FOLIC ACID [Concomitant]
     Active Substance: FOLIC ACID
     Indication: Product used for unknown indication
     Dosage: 1 MG, QD
     Route: 065
  7. LEVETIRACETAM [Concomitant]
     Active Substance: LEVETIRACETAM
     Indication: Product used for unknown indication
     Dosage: 500 MG, BID
     Route: 065
  8. METOPROLOL [Concomitant]
     Active Substance: METOPROLOL
     Indication: Product used for unknown indication
     Dosage: 50 MG, QD (EXTENDED RELEASE)
     Route: 065
  9. PANTOPRAZOLE [Concomitant]
     Active Substance: PANTOPRAZOLE
     Indication: Product used for unknown indication
     Dosage: 40 MG, BID
     Route: 065

REACTIONS (23)
  - Haemorrhage [Unknown]
  - Heart rate increased [Unknown]
  - Sepsis [Unknown]
  - Gastric haemorrhage [Unknown]
  - Systemic lupus erythematosus [Unknown]
  - Skin cancer [Unknown]
  - Dermatitis bullous [Recovering/Resolving]
  - Condition aggravated [Recovering/Resolving]
  - Blister [Unknown]
  - Malaise [Unknown]
  - Infection [Unknown]
  - Oedema peripheral [Unknown]
  - Peripheral swelling [Unknown]
  - Rash [Unknown]
  - Pain [Unknown]
  - Product substitution issue [Unknown]
  - Ill-defined disorder [Unknown]
  - Hypoacusis [Unknown]
  - Adverse drug reaction [Unknown]
  - Weight decreased [Unknown]
  - Blister infected [Unknown]
  - Discharge [Unknown]
  - Blood creatinine abnormal [Unknown]

NARRATIVE: CASE EVENT DATE: 20240901
